FAERS Safety Report 14840926 (Version 3)
Quarter: 2019Q2

REPORT INFORMATION
  Report Type: Spontaneous
  Country: US (occurrence: US)
  Receive Date: 20180503
  Receipt Date: 20190624
  Transmission Date: 20190711
  Serious: No
  Sender: FDA-Public Use
  Company Number: US-PFIZER INC-2018182340

PATIENT
  Age: 35 Year
  Sex: Female
  Weight: 108.8 kg

DRUGS (1)
  1. LYRICA [Suspect]
     Active Substance: PREGABALIN
     Indication: FIBROMYALGIA
     Dosage: 150 MG, TWICE A DAY
     Route: 048
     Dates: start: 2008

REACTIONS (7)
  - Paraesthesia [Unknown]
  - Stress [Unknown]
  - Anxiety [Unknown]
  - Feeling of body temperature change [Unknown]
  - Withdrawal syndrome [Unknown]
  - Intentional product use issue [Unknown]
  - Chills [Unknown]

NARRATIVE: CASE EVENT DATE: 201812
